FAERS Safety Report 9915688 (Version 1)
Quarter: 2014Q1

REPORT INFORMATION
  Report Type: Spontaneous
  Country: CA (occurrence: None)
  Receive Date: 20140218
  Receipt Date: 20140218
  Transmission Date: 20141002
  Serious: Yes (Hospitalization)
  Sender: FDA-Public Use
  Company Number: 2014P1001121

PATIENT
  Age: 12 Year
  Sex: Male

DRUGS (3)
  1. ETHAMBUTOL [Suspect]
     Indication: TUBERCULOSIS
  2. PYRAZINAMIDE [Suspect]
     Indication: TUBERCULOSIS
  3. RIFAMPIN [Suspect]
     Indication: TUBERCULOSIS

REACTIONS (17)
  - Rash pruritic [None]
  - Diarrhoea [None]
  - Pyrexia [None]
  - Viral infection [None]
  - Vomiting [None]
  - Abdominal pain [None]
  - Abdominal distension [None]
  - Lymphopenia [None]
  - Eosinophilia [None]
  - Lymphocytosis [None]
  - Thrombocytopenia [None]
  - Renal failure acute [None]
  - Myalgia [None]
  - Drug reaction with eosinophilia and systemic symptoms [None]
  - Aspartate aminotransferase increased [None]
  - Alanine aminotransferase increased [None]
  - Gamma-glutamyltransferase increased [None]
